FAERS Safety Report 18266703 (Version 1)
Quarter: 2020Q3

REPORT INFORMATION
  Report Type: Spontaneous
  Country: IL (occurrence: IL)
  Receive Date: 20200915
  Receipt Date: 20200915
  Transmission Date: 20201103
  Serious: Yes (Other)
  Sender: FDA-Public Use
  Company Number: IL-TEVA-2020-IL-1826417

PATIENT
  Age: 3 Month
  Sex: Female

DRUGS (3)
  1. PLANT BASED MATERNA (DIETARY SUPPLEMENT) [Suspect]
     Active Substance: DIETARY SUPPLEMENT
     Route: 065
  2. LOSEC [Suspect]
     Active Substance: OMEPRAZOLE
     Route: 065
  3. NUTRILON AR [Suspect]
     Active Substance: DIETARY SUPPLEMENT
     Route: 065

REACTIONS (2)
  - Poor feeding infant [Not Recovered/Not Resolved]
  - Diarrhoea haemorrhagic [Not Recovered/Not Resolved]

NARRATIVE: CASE EVENT DATE: 20200903
